FAERS Safety Report 5848440-8 (Version None)
Quarter: 2008Q3

REPORT INFORMATION
  Report Type: 
  Country: None (occurrence: None)
  Receive Date: 20080818
  Receipt Date: 20080804
  Transmission Date: 20090109
  Serious: Yes (Other)
  Sender: FDA-Public Use
  Company Number: RO-ROCHE-581018

PATIENT
  Age: 45 Year
  Sex: Female

DRUGS (3)
  1. PEGASYS [Suspect]
     Indication: HEPATITIS C
     Dosage: FRQUENCY REPORTED AS WEEKLY
     Route: 065
  2. RIBAVIRIN [Suspect]
     Indication: HEPATITIS C
     Dosage: FREQ REPORTED AS DAILY
     Route: 065
  3. RIBAVIRIN [Suspect]
     Dosage: FREQUENCY REPORTED AS DAILY
     Route: 065

REACTIONS (1)
  - ERYTHEMA NODOSUM [None]
